FAERS Safety Report 17287392 (Version 1)
Quarter: 2020Q1

REPORT INFORMATION
  Report Type: Spontaneous
  Country: ES (occurrence: ES)
  Receive Date: 20200120
  Receipt Date: 20200120
  Transmission Date: 20200409
  Serious: Yes (Other)
  Sender: FDA-Public Use
  Company Number: ES-AUROBINDO-AUR-APL-2020-002792

PATIENT
  Age: 39 Year
  Sex: Male
  Weight: 72 kg

DRUGS (1)
  1. LEVOFLOXACIN APOTEX 500 MG FILM-COATED TABLETS EFH [Suspect]
     Active Substance: LEVOFLOXACIN
     Indication: URINARY TRACT INFECTION
     Dosage: 500 MILLIGRAM, ONCE A DAY
     Route: 048
     Dates: start: 20181002, end: 20181012

REACTIONS (10)
  - Myalgia [Not Recovered/Not Resolved]
  - Tremor [Unknown]
  - Fatigue [Not Recovered/Not Resolved]
  - Anxiety [Unknown]
  - Joint noise [Unknown]
  - Tendonitis [Not Recovered/Not Resolved]
  - Hypotonia [Unknown]
  - Neuropathy peripheral [Not Recovered/Not Resolved]
  - Muscular weakness [Unknown]
  - Oversensing [Unknown]

NARRATIVE: CASE EVENT DATE: 2018
